FAERS Safety Report 6651740-5 (Version None)
Quarter: 2010Q1

REPORT INFORMATION
  Report Type: 
  Country: None (occurrence: None)
  Receive Date: 20100325
  Receipt Date: 20100309
  Transmission Date: 20100710
  Serious: Yes (Other)
  Sender: FDA-Public Use
  Company Number: AU-ALLERGAN-1003265US

PATIENT
  Age: 3 Year
  Sex: Female

DRUGS (6)
  1. FLUOROMETHOLONE UNSPEC [Suspect]
     Indication: ANTERIOR CHAMBER INFLAMMATION
     Dosage: UNK
     Route: 047
  2. FLUOROMETHOLONE UNSPEC [Suspect]
     Indication: CORNEAL DISORDER
  3. FLUOROMETHOLONE UNSPEC [Suspect]
     Indication: POSTOPERATIVE CARE
  4. VORICONAZOLE [Concomitant]
     Dosage: UNK
     Route: 047
  5. VORICONAZOLE [Concomitant]
     Dosage: 100 MG, BID
     Route: 048
  6. POLYHEXAMETHYLENE BIGUANIDE [Concomitant]
     Dosage: UNK
     Route: 047

REACTIONS (3)
  - INFECTIOUS CRYSTALLINE KERATOPATHY [None]
  - PROCEDURAL COMPLICATION [None]
  - TRANSPLANT REJECTION [None]
